FAERS Safety Report 6217921-X (Version None)
Quarter: 2009Q2

REPORT INFORMATION
  Report Type: 
  Country: None (occurrence: None)
  Receive Date: 20090608
  Receipt Date: 20090603
  Transmission Date: 20091009
  Serious: Yes (Life-Threatening, Hospitalization, Other)
  Sender: FDA-Public Use
  Company Number: GB-ASTRAZENECA-2009GB01268

PATIENT
  Age: 88 Year
  Sex: Female
  Weight: 69 kg

DRUGS (8)
  1. QUETIAPINE FUMARATE [Suspect]
     Indication: AGITATION
     Route: 048
     Dates: start: 20090429
  2. QUETIAPINE FUMARATE [Suspect]
     Indication: DEMENTIA
     Route: 048
     Dates: start: 20090429
  3. VERAPAMIL [Suspect]
     Indication: BLOOD PRESSURE INCREASED
     Route: 048
     Dates: start: 19920101
  4. ASPIRIN [Concomitant]
     Route: 048
  5. GLICLAZIDE [Concomitant]
     Dosage: 80MG
     Route: 048
  6. LEVOTHYROXINE [Concomitant]
     Route: 048
  7. LOSARTAN POTASSIUM [Concomitant]
     Route: 048
  8. PARACETAMOL [Concomitant]
     Route: 048

REACTIONS (3)
  - ATRIAL FIBRILLATION [None]
  - BRADYCARDIA [None]
  - LOSS OF CONSCIOUSNESS [None]
